FAERS Safety Report 14276248 (Version 2)
Quarter: 2018Q1

REPORT INFORMATION
  Report Type: Report from Study
  Country: CO (occurrence: CO)
  Receive Date: 20171212
  Receipt Date: 20180102
  Transmission Date: 20180508
  Serious: Yes (Death, Hospitalization)
  Sender: FDA-Public Use
  Company Number: CO-ACTELION-A-CH2017-163686

PATIENT
  Age: 80 Year
  Sex: Female
  Weight: 42 kg

DRUGS (1)
  1. OPSUMIT [Suspect]
     Active Substance: MACITENTAN
     Indication: PULMONARY ARTERIAL HYPERTENSION
     Dosage: 10 MG, QD
     Route: 048
     Dates: start: 20170601, end: 20171112

REACTIONS (3)
  - Respiratory tract infection bacterial [Fatal]
  - Cardiac arrest [Fatal]
  - Renal failure [Fatal]

NARRATIVE: CASE EVENT DATE: 20171116
